FAERS Safety Report 7901184-0 (Version None)
Quarter: 2011Q4

REPORT INFORMATION
  Report Type: 
  Country: None (occurrence: None)
  Receive Date: 20111108
  Receipt Date: 20111025
  Transmission Date: 20120403
  Serious: Yes (Other)
  Sender: FDA-Public Use
  Company Number: US-ELI_LILLY_AND_COMPANY-US201109004605

PATIENT
  Sex: Female

DRUGS (1)
  1. FORTEO [Suspect]
     Indication: OSTEOPOROSIS
     Dosage: UNK, UNKNOWN
     Dates: start: 20110906, end: 20110926

REACTIONS (9)
  - ASTHENIA [None]
  - BONE LOSS [None]
  - CEREBROVASCULAR ACCIDENT [None]
  - HEADACHE [None]
  - DIZZINESS [None]
  - BONE PAIN [None]
  - BALANCE DISORDER [None]
  - LIMB DISCOMFORT [None]
  - INJECTION SITE HAEMATOMA [None]
